FAERS Safety Report 5371251-7 (Version None)
Quarter: 2007Q2

REPORT INFORMATION
  Report Type: 
  Country: None (occurrence: None)
  Receive Date: 20070615
  Receipt Date: 20070126
  Transmission Date: 20071010
  Serious: Yes (Other)
  Sender: FDA-Public Use
  Company Number: 200710616US

PATIENT
  Age: 18 Year
  Sex: Female

DRUGS (6)
  1. LANTUS [Suspect]
     Indication: DIABETES MELLITUS INSULIN-DEPENDENT
     Dosage: 100 U QAM
     Dates: start: 20030701
  2. NOVOLOG [Suspect]
     Dates: start: 20040101
  3. PARACETAMOL [Concomitant]
  4. OMEPRAZOLE (PRILOSEC /00661201/) [Concomitant]
  5. CETIRIZINE HYDROCHLORIDE (ZYRTEC /00884302/) [Concomitant]
  6. FACTOR I (FIBRINOGEN) (HAEMOCOMPLETTAN) [Concomitant]

REACTIONS (4)
  - BLOOD GLUCOSE DECREASED [None]
  - DRUG INEFFECTIVE [None]
  - HYPERGLYCAEMIA [None]
  - INTENTIONAL DRUG MISUSE [None]
